FAERS Safety Report 18129166 (Version 1)
Quarter: 2020Q3

REPORT INFORMATION
  Report Type: Spontaneous
  Country: US (occurrence: US)
  Receive Date: 20200808
  Receipt Date: 20200808
  Transmission Date: 20201103
  Serious: No
  Sender: FDA-Public Use
  Company Number: None

PATIENT
  Age: 51 Year
  Sex: Male
  Weight: 127.7 kg

DRUGS (2)
  1. BRILINTA 90 MG TABLET [Concomitant]
  2. HEPARIN SODIUM INJECTION USP [Suspect]
     Active Substance: HEPARIN SODIUM
     Indication: CATHETERISATION CARDIAC
     Route: 040
     Dates: start: 20200802, end: 20200802

REACTIONS (2)
  - Product quality issue [None]
  - Therapeutic response decreased [None]

NARRATIVE: CASE EVENT DATE: 20200802
